FAERS Safety Report 4597563-2 (Version None)
Quarter: 2005Q1

REPORT INFORMATION
  Report Type: 
  Country: None (occurrence: None)
  Receive Date: 20050228
  Receipt Date: 20050228
  Transmission Date: 20050727
  Serious: Yes (Other)
  Sender: FDA-Public Use
  Company Number: None

PATIENT
  Age: 54 Year
  Sex: Male
  Weight: 81.6475 kg

DRUGS (2)
  1. PROVIGIL [Suspect]
     Indication: DISTURBANCE IN ATTENTION
     Dosage: ONE IN AM     1/2 BID    ORAL
     Route: 048
     Dates: start: 20040422, end: 20040726
  2. PROVIGIL [Suspect]
     Indication: FATIGUE
     Dosage: ONE IN AM     1/2 BID    ORAL
     Route: 048
     Dates: start: 20040422, end: 20040726

REACTIONS (1)
  - VENTRICULAR EXTRASYSTOLES [None]
